FAERS Safety Report 16912474 (Version 2)
Quarter: 2019Q4

REPORT INFORMATION
  Report Type: Report from Study
  Country: DE (occurrence: DE)
  Receive Date: 20191014
  Receipt Date: 20191031
  Transmission Date: 20200122
  Serious: Yes (Hospitalization)
  Sender: FDA-Public Use
  Company Number: DE-ROCHE-2336031

PATIENT
  Age: 62 Year
  Sex: Male
  Weight: 77 kg

DRUGS (10)
  1. FLUOROURACIL. [Suspect]
     Active Substance: FLUOROURACIL
     Indication: OESOPHAGEAL ADENOCARCINOMA
     Dosage: MOST DOSE GIVEN OF 5-FU ATGIVEN ON 25/SEP/2019 (5096 MG) PRIOR TO SECOND OCCURANCE OF INFUSION RELAT
     Route: 042
     Dates: start: 20190604
  2. OXALIPLATIN. [Suspect]
     Active Substance: OXALIPLATIN
     Route: 042
     Dates: start: 20190925
  3. DOCETAXEL. [Suspect]
     Active Substance: DOCETAXEL
     Route: 042
     Dates: start: 20190910
  4. FOLINIC ACID [Suspect]
     Active Substance: LEUCOVORIN
     Route: 042
     Dates: start: 20190910
  5. ATEZOLIZUMAB. [Suspect]
     Active Substance: ATEZOLIZUMAB
     Indication: OESOPHAGEAL ADENOCARCINOMA
     Dosage: MOST RECENT DOSE GIVEN OF ATEZOLIZUMAB ON 09/OCT/2019 AT 840 MG PRIOR TO SECOND OCCURANCE INFUSION R
     Route: 042
     Dates: start: 20190604
  6. FLUOROURACIL. [Suspect]
     Active Substance: FLUOROURACIL
     Route: 042
     Dates: start: 20190910
  7. ATEZOLIZUMAB. [Suspect]
     Active Substance: ATEZOLIZUMAB
     Route: 042
     Dates: start: 20190925
  8. OXALIPLATIN. [Suspect]
     Active Substance: OXALIPLATIN
     Indication: OESOPHAGEAL ADENOCARCINOMA
     Dosage: MOST RECENT DOSE GIVEN OF OXALIPLATIN OF 181.9 MG ON 04/JUN/2019 (AT FIRST OCCURANCE)?MOST RECENT D
     Route: 042
     Dates: start: 20190604
  9. DOCETAXEL. [Suspect]
     Active Substance: DOCETAXEL
     Indication: OESOPHAGEAL ADENOCARCINOMA
     Dosage: MOST RECENT DOSE GIVEN OF DOCETAXEL ON 25/SEP/2019 98 MG PRIOR TO FIRST OCCURANCE OF INFUSION RELATE
     Route: 042
     Dates: start: 20190604
  10. FOLINIC ACID [Suspect]
     Active Substance: LEUCOVORIN
     Indication: OESOPHAGEAL ADENOCARCINOMA
     Dosage: MOST RECENT DOSE GIVEN OF FOLINIC ON 25/SEP/2019 (392 MG) PRIOR TO SECOND OCCURANCE OF INFUSION RELA
     Route: 042
     Dates: start: 20190604

REACTIONS (3)
  - Infusion related reaction [Recovered/Resolved]
  - Infusion related reaction [Recovered/Resolved]
  - Pyrexia [Recovered/Resolved]

NARRATIVE: CASE EVENT DATE: 20190605
